FAERS Safety Report 7272158-0 (Version None)
Quarter: 2010Q4

REPORT INFORMATION
  Report Type: 
  Country: None (occurrence: None)
  Receive Date: 20101215
  Receipt Date: 20081110
  Transmission Date: 20110411
  Serious: Yes (Hospitalization)
  Sender: FDA-Public Use
  Company Number: US-SEPTODONT-200800220

PATIENT
  Age: 81 Year
  Sex: Female

DRUGS (1)
  1. CARBOCAIN [Suspect]
     Indication: LOCAL ANAESTHESIA
     Dosage: DENTAL
     Route: 004
     Dates: start: 20081106, end: 20081106

REACTIONS (1)
  - CONVULSION [None]
